FAERS Safety Report 8363652-X (Version None)
Quarter: 2012Q2

REPORT INFORMATION
  Report Type: 
  Country: None (occurrence: None)
  Receive Date: 20120516
  Receipt Date: 20120508
  Transmission Date: 20120825
  Serious: Yes (Hospitalization)
  Sender: FDA-Public Use
  Company Number: JP-JNJFOC-20120409758

PATIENT
  Sex: Female
  Weight: 38.7 kg

DRUGS (17)
  1. TAPENTADOL HYDROCHLORIDE [Suspect]
     Indication: CANCER PAIN
     Route: 048
     Dates: start: 20120418, end: 20120423
  2. MAGNESIUM SULFATE [Concomitant]
     Indication: CONSTIPATION
     Route: 048
     Dates: end: 20120416
  3. SODIUM CHLORIDE [Concomitant]
     Indication: FLUID REPLACEMENT
     Route: 042
     Dates: start: 20120410, end: 20120410
  4. TAPENTADOL HYDROCHLORIDE [Suspect]
     Dosage: TWICE A DAY
     Route: 048
     Dates: start: 20120327, end: 20120417
  5. POTASSIUM CHLORIDE [Concomitant]
     Route: 042
     Dates: start: 20120418, end: 20120418
  6. VITAMEDIN [Concomitant]
     Route: 042
     Dates: start: 20120418, end: 20120418
  7. FEMARA [Concomitant]
     Indication: CHEMOTHERAPY
     Route: 048
     Dates: end: 20120417
  8. LANSOPRAZOLE [Concomitant]
     Indication: GASTRITIS PROPHYLAXIS
     Route: 048
     Dates: end: 20120417
  9. CHOREITOU [Concomitant]
     Indication: CYSTITIS HAEMORRHAGIC
     Route: 048
     Dates: end: 20120417
  10. FERROUS SULFATE TAB [Concomitant]
     Indication: IRON DEFICIENCY ANAEMIA
     Route: 048
     Dates: end: 20120417
  11. LACTEC [Concomitant]
     Route: 042
     Dates: start: 20120417, end: 20120417
  12. ZOMETA [Concomitant]
     Indication: CHEMOTHERAPY
     Route: 042
  13. BLOOD TRANSFUSION [Concomitant]
     Dosage: 4, 18, 19 UNITS
     Route: 042
     Dates: start: 20120403, end: 20120403
  14. POTASSIUM CHLORIDE [Concomitant]
     Route: 042
     Dates: start: 20120419, end: 20120420
  15. CONFATANIN [Concomitant]
     Indication: CANCER PAIN
     Route: 048
     Dates: end: 20120417
  16. SITAGLIPTIN PHOSPHATE [Concomitant]
     Indication: DIABETES MELLITUS
     Route: 048
     Dates: end: 20120417
  17. SODIUM CHLORIDE [Concomitant]
     Route: 042
     Dates: start: 20120403, end: 20120403

REACTIONS (1)
  - FALL [None]
